FAERS Safety Report 9026549 (Version 2)
Quarter: 2013Q1

REPORT INFORMATION
  Report Type: Report from Study
  Country: US (occurrence: US)
  Receive Date: 20130123
  Receipt Date: 20130225
  Transmission Date: 20140127
  Serious: No
  Sender: FDA-Public Use
  Company Number: US-JNJFOC-20130106249

PATIENT
  Sex: Female
  Weight: 104.33 kg

DRUGS (5)
  1. STELARA [Suspect]
     Indication: PSORIASIS
     Route: 058
     Dates: start: 201211
  2. TYLENOL [Suspect]
     Route: 048
  3. TYLENOL [Suspect]
     Indication: PAIN
     Dosage: 2-3 TIMES
     Route: 048
  4. TACLONEX [Suspect]
     Indication: PRODUCT USED FOR UNKNOWN INDICATION
     Route: 061
  5. TRAMADOL [Concomitant]
     Indication: PAIN
     Dosage: 2-3 TIMES DAILY AS NECESSARY
     Route: 048

REACTIONS (3)
  - Hepatic enzyme increased [Not Recovered/Not Resolved]
  - Skin reaction [Not Recovered/Not Resolved]
  - Pruritus [Not Recovered/Not Resolved]
